FAERS Safety Report 20762397 (Version 2)
Quarter: 2022Q2

REPORT INFORMATION
  Report Type: Spontaneous
  Country: US (occurrence: US)
  Receive Date: 20220428
  Receipt Date: 20220601
  Transmission Date: 20220721
  Serious: No
  Sender: FDA-Public Use
  Company Number: US-PFIZER INC-202200342788

PATIENT
  Age: 81 Year
  Sex: Female
  Weight: 106.14 kg

DRUGS (1)
  1. TOVIAZ [Suspect]
     Active Substance: FESOTERODINE FUMARATE
     Indication: Renal disorder
     Dosage: 8 MG, 1X/DAY

REACTIONS (2)
  - Confusional state [Unknown]
  - Product use complaint [Unknown]
